FAERS Safety Report 8205204-8 (Version None)
Quarter: 2012Q1

REPORT INFORMATION
  Report Type: 
  Country: None (occurrence: None)
  Receive Date: 20120313
  Receipt Date: 20120302
  Transmission Date: 20120608
  Serious: Yes (Other)
  Sender: FDA-Public Use
  Company Number: ES-TEVA-327098ISR

PATIENT
  Age: 84 Year
  Sex: Male

DRUGS (7)
  1. LEVODOPA [Concomitant]
     Indication: VASCULAR PARKINSONISM
  2. AZILECT [Suspect]
     Indication: VASCULAR PARKINSONISM
     Dosage: 1 MILLIGRAM;
     Route: 048
     Dates: start: 20110101, end: 20120223
  3. MIDAZOLAM [Interacting]
     Indication: INDUCTION OF ANAESTHESIA
     Route: 042
     Dates: start: 20120224, end: 20120224
  4. FENTANYL CITRATE [Interacting]
     Indication: INDUCTION OF ANAESTHESIA
     Dates: start: 20120224, end: 20120224
  5. STALEVO 100 [Concomitant]
     Indication: VASCULAR PARKINSONISM
  6. MORPHINE [Interacting]
     Indication: INDUCTION OF ANAESTHESIA
     Route: 050
     Dates: start: 20120224, end: 20120224
  7. ANTIHYPERTENSIVE [Concomitant]
     Indication: HYPERTENSION

REACTIONS (2)
  - HYPERTENSIVE CRISIS [None]
  - DRUG INTERACTION [None]
